FAERS Safety Report 19245210 (Version 1)
Quarter: 2021Q2

REPORT INFORMATION
  Report Type: Spontaneous
  Country: US (occurrence: US)
  Receive Date: 20210512
  Receipt Date: 20210512
  Transmission Date: 20210717
  Serious: Yes (Other)
  Sender: FDA-Public Use
  Company Number: US-LUPIN PHARMACEUTICALS INC.-2021-06575

PATIENT
  Age: 39 Year
  Sex: Female

DRUGS (1)
  1. LEVONORGESTREL. [Suspect]
     Active Substance: LEVONORGESTREL
     Indication: INTRAUTERINE CONTRACEPTION
     Dosage: 52 MILLIGRAM
     Route: 015

REACTIONS (4)
  - Uterine adhesions [Recovered/Resolved]
  - Asherman^s syndrome [Recovered/Resolved]
  - Infertility [Recovered/Resolved]
  - Endometrial disorder [Recovered/Resolved]
